FAERS Safety Report 8283640-1 (Version None)
Quarter: 2012Q2

REPORT INFORMATION
  Report Type: 
  Country: None (occurrence: None)
  Receive Date: 20120413
  Receipt Date: 20120405
  Transmission Date: 20120825
  Serious: Yes (Hospitalization, Other)
  Sender: FDA-Public Use
  Company Number: PHHY2012BE015123

PATIENT
  Sex: Male

DRUGS (2)
  1. DIURETICS [Concomitant]
     Indication: HYPERTENSION
  2. DIOVAN [Suspect]
     Indication: HYPERTENSION
     Dosage: UNK UKN, UNK
     Route: 048
     Dates: start: 20100101, end: 20120222

REACTIONS (4)
  - RENAL FUNCTION TEST ABNORMAL [None]
  - RENAL FAILURE ACUTE [None]
  - CREATININE RENAL CLEARANCE DECREASED [None]
  - RENAL ARTERY STENOSIS [None]
